FAERS Safety Report 20688849 (Version 1)
Quarter: 2022Q2

REPORT INFORMATION
  Report Type: Spontaneous
  Country: FR (occurrence: FR)
  Receive Date: 20220408
  Receipt Date: 20220408
  Transmission Date: 20220721
  Serious: Yes (Hospitalization)
  Sender: FDA-Public Use
  Company Number: None

PATIENT
  Age: 57 Year
  Sex: Male

DRUGS (5)
  1. DICLOFENAC [Suspect]
     Active Substance: DICLOFENAC
     Indication: Back pain
     Dosage: UNIT DOSE: 5 DF, FREQUENCY TIME- 1 TOTAL, DURATION-2 DAYS
     Route: 048
     Dates: start: 20220130, end: 20220201
  2. OMEPRAZOLE [Concomitant]
     Active Substance: OMEPRAZOLE
  3. HYDROCHLOROTHIAZIDE\IRBESARTAN [Concomitant]
     Active Substance: HYDROCHLOROTHIAZIDE\IRBESARTAN
  4. BILASTINE [Concomitant]
     Active Substance: BILASTINE
  5. FLUTICASONE FUROATE [Concomitant]
     Active Substance: FLUTICASONE FUROATE

REACTIONS (3)
  - Dyspnoea [Recovered/Resolved]
  - Angioedema [Recovered/Resolved]
  - Laryngeal discomfort [Recovered/Resolved]

NARRATIVE: CASE EVENT DATE: 20220202
